FAERS Safety Report 8733623 (Version 2)
Quarter: 2012Q4

REPORT INFORMATION
  Report Type: 
  Country: US (occurrence: US)
  Receive Date: 20120821
  Receipt Date: 20121219
  Transmission Date: 20130627
  Serious: Yes (Hospitalization, Other)
  Sender: FDA-Public Use
  Company Number: PHEH2012US015991

PATIENT
  Sex: Male

DRUGS (9)
  1. TRILEPTAL [Suspect]
     Indication: DEPRESSION
     Dosage: 150 mg, TID
     Route: 048
     Dates: start: 20060116
  2. BUSPIRONE [Concomitant]
  3. MINOCYCLINE [Concomitant]
  4. ERYTHROMYCIN [Concomitant]
  5. SEROQUEL [Concomitant]
  6. BUSPAR [Concomitant]
  7. ACYCLOVIR [Concomitant]
  8. ACETAMINOPHEN [Concomitant]
  9. FAMOTIDINE [Concomitant]

REACTIONS (45)
  - Affective disorder [Unknown]
  - Stevens-Johnson syndrome [Unknown]
  - Mucosal inflammation [Recovering/Resolving]
  - Rash [Unknown]
  - Oropharyngeal pain [Unknown]
  - Chills [Unknown]
  - Headache [Unknown]
  - Vomiting [Unknown]
  - Skin lesion [Unknown]
  - Abdominal pain [Unknown]
  - Cough [Unknown]
  - Dehydration [Unknown]
  - Kawasaki^s disease [Unknown]
  - Conjunctivitis [Unknown]
  - Pyrexia [Unknown]
  - Urethritis [Unknown]
  - Cheilitis [Unknown]
  - Dysuria [Unknown]
  - Oral pain [Unknown]
  - Lip pain [Unknown]
  - Erythema [Unknown]
  - Ocular hyperaemia [Unknown]
  - Vision blurred [Unknown]
  - Viral infection [Unknown]
  - Epistaxis [Unknown]
  - Ulcer [Recovering/Resolving]
  - Haemorrhage [Recovering/Resolving]
  - Lip haemorrhage [Recovering/Resolving]
  - Influenza [Unknown]
  - Oedema mouth [Unknown]
  - Myopia [Unknown]
  - Dry eye [Unknown]
  - Pharyngeal inflammation [Unknown]
  - Rhinitis allergic [Unknown]
  - Malaise [Unknown]
  - Fatigue [Unknown]
  - Acne [Unknown]
  - Stomatitis [Unknown]
  - Weight decreased [Unknown]
  - Pain [Unknown]
  - Injury [Unknown]
  - Anhedonia [Unknown]
  - Emotional distress [Unknown]
  - Anxiety [Unknown]
  - Mental disorder [Unknown]
